FAERS Safety Report 18426650 (Version 1)
Quarter: 2020Q4

REPORT INFORMATION
  Report Type: Spontaneous
  Country: US (occurrence: US)
  Receive Date: 20201026
  Receipt Date: 20201026
  Transmission Date: 20210114
  Serious: Yes (Death)
  Sender: FDA-Public Use
  Company Number: None

PATIENT
  Age: 57 Year
  Sex: Female
  Weight: 73.8 kg

DRUGS (5)
  1. REMDESIVIR. [Suspect]
     Active Substance: REMDESIVIR
     Indication: SUSPECTED COVID-19
     Dosage: ?          OTHER FREQUENCY:ONCE;?
     Route: 042
     Dates: start: 20201014, end: 20201014
  2. REMDESIVIR. [Suspect]
     Active Substance: REMDESIVIR
     Indication: COVID-19
     Route: 042
     Dates: start: 20201015, end: 20201015
  3. METHYLPREDNISOLONE. [Concomitant]
     Active Substance: METHYLPREDNISOLONE
     Dates: start: 20201014, end: 20201025
  4. DUONEB [Concomitant]
     Active Substance: ALBUTEROL SULFATE\IPRATROPIUM BROMIDE
     Dates: start: 20201014, end: 20201021
  5. ZINC SULFATE. [Concomitant]
     Active Substance: ZINC SULFATE
     Dates: start: 20201014, end: 20201025

REACTIONS (9)
  - Respiratory failure [None]
  - Respiratory rate increased [None]
  - Refusal of treatment by patient [None]
  - Incorrect dose administered [None]
  - Pneumonia bacterial [None]
  - Oxygen saturation decreased [None]
  - Septic shock [None]
  - Heart rate increased [None]
  - Acute respiratory distress syndrome [None]

NARRATIVE: CASE EVENT DATE: 20201025
